FAERS Safety Report 25502998 (Version 2)
Quarter: 2025Q3

REPORT INFORMATION
  Report Type: Spontaneous
  Country: EU (occurrence: EU)
  Receive Date: 20250702
  Receipt Date: 20250709
  Transmission Date: 20251021
  Serious: Yes (Hospitalization)
  Sender: JOHNSON AND JOHNSON
  Company Number: None

PATIENT
  Age: 59 Year
  Sex: Female
  Weight: 64 kg

DRUGS (1)
  1. SIMPONI [Suspect]
     Active Substance: GOLIMUMAB
     Indication: Rheumatoid arthritis
     Route: 058
     Dates: start: 2016, end: 2022

REACTIONS (3)
  - Systemic lupus erythematosus [Recovered/Resolved with Sequelae]
  - Blood pressure increased [Recovered/Resolved with Sequelae]
  - Renal failure [Recovered/Resolved with Sequelae]

NARRATIVE: CASE EVENT DATE: 20220201
